FAERS Safety Report 4275087-X (Version None)
Quarter: 2004Q1

REPORT INFORMATION
  Report Type: 
  Country: None (occurrence: None)
  Receive Date: 20040116
  Receipt Date: 20040108
  Transmission Date: 20041129
  Serious: Yes (Death, Hospitalization, Other)
  Sender: FDA-Public Use
  Company Number: 2004001601

PATIENT
  Age: 63 Year
  Sex: Male

DRUGS (3)
  1. ZITHROMAX [Suspect]
     Indication: BRONCHITIS
     Dosage: ILL-DEFINED DISORDER NOS
     Route: 048
     Dates: start: 20011029, end: 20031101
  2. MOXIFLOXACIN HCL [Suspect]
     Indication: BRONCHITIS
     Dates: start: 20010716, end: 20031205
  3. LISINOPRIL [Concomitant]

REACTIONS (5)
  - BRONCHITIS [None]
  - DRUG TOXICITY [None]
  - JAUNDICE [None]
  - LIVER DISORDER [None]
  - SINUSITIS [None]
